FAERS Safety Report 7812394-5 (Version None)
Quarter: 2011Q4

REPORT INFORMATION
  Report Type: 
  Country: None (occurrence: None)
  Receive Date: 20111011
  Receipt Date: 20111006
  Transmission Date: 20120403
  Serious: Yes (Death)
  Sender: FDA-Public Use
  Company Number: 2009SP042114

PATIENT
  Age: 61 Year
  Sex: Male
  Weight: 55.6 kg

DRUGS (17)
  1. AMLODIN OD [Concomitant]
  2. RABEPRAZOLE SODIUM [Concomitant]
  3. SULFAMETHOXAZOLE [Concomitant]
  4. BETAMETHASONE [Suspect]
     Dosage: 2 MG;QD;PO
     Route: 048
     Dates: start: 20080819, end: 20081117
  5. FERON [Concomitant]
  6. TEMODAL [Suspect]
     Indication: ANAPLASTIC ASTROCYTOMA
     Dosage: 75 MG/M2;QD;PO  150 MG/M2;QD;PO  200 MG/M2;QD;PO
     Route: 048
     Dates: start: 20080429, end: 20080503
  7. TEMODAL [Suspect]
     Indication: ANAPLASTIC ASTROCYTOMA
     Dosage: 75 MG/M2;QD;PO  150 MG/M2;QD;PO  200 MG/M2;QD;PO
     Route: 048
     Dates: start: 20080723, end: 20080727
  8. TEMODAL [Suspect]
     Indication: ANAPLASTIC ASTROCYTOMA
     Dosage: 75 MG/M2;QD;PO  150 MG/M2;QD;PO  200 MG/M2;QD;PO
     Route: 048
     Dates: start: 20080917, end: 20080921
  9. TEMODAL [Suspect]
     Indication: ANAPLASTIC ASTROCYTOMA
     Dosage: 75 MG/M2;QD;PO  150 MG/M2;QD;PO  200 MG/M2;QD;PO
     Route: 048
     Dates: start: 20080304, end: 20080308
  10. TEMODAL [Suspect]
     Indication: ANAPLASTIC ASTROCYTOMA
     Dosage: 75 MG/M2;QD;PO  150 MG/M2;QD;PO  200 MG/M2;QD;PO
     Route: 048
     Dates: start: 20081105, end: 20081109
  11. TEMODAL [Suspect]
     Indication: ANAPLASTIC ASTROCYTOMA
     Dosage: 75 MG/M2;QD;PO  150 MG/M2;QD;PO  200 MG/M2;QD;PO
     Route: 048
     Dates: start: 20071121, end: 20080108
  12. TEMODAL [Suspect]
     Indication: ANAPLASTIC ASTROCYTOMA
     Dosage: 75 MG/M2;QD;PO  150 MG/M2;QD;PO  200 MG/M2;QD;PO
     Route: 048
     Dates: start: 20080820, end: 20080824
  13. TEMODAL [Suspect]
     Indication: ANAPLASTIC ASTROCYTOMA
     Dosage: 75 MG/M2;QD;PO  150 MG/M2;QD;PO  200 MG/M2;QD;PO
     Route: 048
     Dates: start: 20080205, end: 20080209
  14. TEMODAL [Suspect]
     Indication: ANAPLASTIC ASTROCYTOMA
     Dosage: 75 MG/M2;QD;PO  150 MG/M2;QD;PO  200 MG/M2;QD;PO
     Route: 048
     Dates: start: 20080401, end: 20080405
  15. TEMODAL [Suspect]
     Indication: ANAPLASTIC ASTROCYTOMA
     Dosage: 75 MG/M2;QD;PO  150 MG/M2;QD;PO  200 MG/M2;QD;PO
     Route: 048
     Dates: start: 20080527, end: 20080531
  16. TEMODAL [Suspect]
     Indication: ANAPLASTIC ASTROCYTOMA
     Dosage: 75 MG/M2;QD;PO  150 MG/M2;QD;PO  200 MG/M2;QD;PO
     Route: 048
     Dates: start: 20080624, end: 20080628
  17. CRAVIT (LEVOFLOXACIN HYDRATE) [Concomitant]

REACTIONS (4)
  - URINARY TRACT INFECTION [None]
  - PULMONARY EMBOLISM [None]
  - CARDIO-RESPIRATORY ARREST [None]
  - HEMIPLEGIA [None]
